FAERS Safety Report 13941601 (Version 1)
Quarter: 2017Q3

REPORT INFORMATION
  Report Type: Spontaneous
  Country: US (occurrence: None)
  Receive Date: 20170906
  Receipt Date: 20170906
  Transmission Date: 20171127
  Serious: Yes (Hospitalization)
  Sender: FDA-Public Use
  Company Number: None

PATIENT
  Age: 64 Year
  Sex: Male

DRUGS (1)
  1. TRACLEER [Suspect]
     Active Substance: BOSENTAN
     Indication: PULMONARY ARTERIAL HYPERTENSION
     Route: 048
     Dates: start: 20141119

REACTIONS (6)
  - Cardiac failure congestive [None]
  - Back pain [None]
  - Bronchitis [None]
  - Asthma [None]
  - Atrial fibrillation [None]
  - Hypoxia [None]

NARRATIVE: CASE EVENT DATE: 20170901
